FAERS Safety Report 8395511-0 (Version None)
Quarter: 2012Q2

REPORT INFORMATION
  Report Type: 
  Country: None (occurrence: None)
  Receive Date: 20120530
  Receipt Date: 20110523
  Transmission Date: 20120825
  Serious: No
  Sender: FDA-Public Use
  Company Number: US-GLAXOSMITHKLINE-A0929570A

PATIENT
  Age: 64 Year
  Sex: Male

DRUGS (2)
  1. OXYGEN [Concomitant]
  2. VENTOLIN [Suspect]
     Indication: PRODUCT USED FOR UNKNOWN INDICATION
     Route: 055
     Dates: start: 20100507

REACTIONS (3)
  - LUNG DISORDER [None]
  - INHALATION THERAPY [None]
  - PULMONARY FUNCTION TEST DECREASED [None]
